FAERS Safety Report 16085032 (Version 1)
Quarter: 2019Q1

REPORT INFORMATION
  Report Type: Spontaneous
  Country: RU (occurrence: RU)
  Receive Date: 20190318
  Receipt Date: 20190318
  Transmission Date: 20190418
  Serious: Yes (Life-Threatening, Hospitalization, Other)
  Sender: FDA-Public Use
  Company Number: IND-RU-009507513-1903RUS003277

PATIENT
  Age: 45 Year
  Sex: Male
  Weight: 145 kg

DRUGS (2)
  1. ESMERON [Suspect]
     Active Substance: ROCURONIUM BROMIDE
     Indication: PRODUCT USED FOR UNKNOWN INDICATION
     Dosage: DAILY DOSE UNKNOWN MG/60 MG
     Route: 042
  2. DIPRIVAN [Suspect]
     Active Substance: PROPOFOL
     Indication: PRODUCT USED FOR UNKNOWN INDICATION
     Dosage: DAILY DOSE - UNKNOWN MG/60 MG
     Route: 042
     Dates: start: 201601, end: 201601

REACTIONS (5)
  - Acute kidney injury [Recovering/Resolving]
  - Coma [Recovering/Resolving]
  - Hyperkalaemia [Recovering/Resolving]
  - Laryngeal oedema [Recovering/Resolving]
  - Anaphylactoid reaction [Recovering/Resolving]

NARRATIVE: CASE EVENT DATE: 201601
